FAERS Safety Report 16149210 (Version 3)
Quarter: 2020Q1

REPORT INFORMATION
  Report Type: Spontaneous
  Country: US (occurrence: US)
  Receive Date: 20190402
  Receipt Date: 20200331
  Transmission Date: 20200409
  Serious: No
  Sender: FDA-Public Use
  Company Number: US-BIOMARINAP-US-2019-122725

PATIENT
  Sex: Female
  Weight: 72 kg

DRUGS (2)
  1. KUVAN [Suspect]
     Active Substance: SAPROPTERIN DIHYDROCHLORIDE
     Indication: PHENYLKETONURIA
     Dosage: 1400 MILLIGRAM, QD
     Route: 065
     Dates: start: 201305
  2. KUVAN [Suspect]
     Active Substance: SAPROPTERIN DIHYDROCHLORIDE
     Dosage: 1500 MILLIGRAM, QD
     Route: 065

REACTIONS (4)
  - Nausea [Unknown]
  - Migraine [Unknown]
  - Dyspepsia [Unknown]
  - Abdominal discomfort [Unknown]
